FAERS Safety Report 9846518 (Version 3)
Quarter: 2014Q1

REPORT INFORMATION
  Report Type: Report from Study
  Country: ES (occurrence: ES)
  Receive Date: 20140127
  Receipt Date: 20140207
  Transmission Date: 20141002
  Serious: Yes (Other)
  Sender: FDA-Public Use
  Company Number: ES-TEVA-458679USA

PATIENT
  Age: 60 Year
  Sex: Male
  Weight: 88 kg

DRUGS (3)
  1. BENDAMUSTINE [Suspect]
     Indication: PLASMA CELL MYELOMA
     Dosage: CYCLIC
     Route: 042
     Dates: start: 20120123, end: 20120716
  2. VELCADE [Suspect]
     Indication: PLASMA CELL MYELOMA
     Dosage: CYCLIC
     Route: 042
     Dates: start: 20120123, end: 20120712
  3. PREDNISONE [Suspect]
     Indication: PLASMA CELL MYELOMA
     Dosage: CYCLIC
     Route: 048
     Dates: start: 20120123, end: 20120712

REACTIONS (1)
  - Blood stem cell harvest failure [Unknown]
